FAERS Safety Report 5356786-5 (Version None)
Quarter: 2007Q2

REPORT INFORMATION
  Report Type: 
  Country: None (occurrence: None)
  Receive Date: 20070614
  Receipt Date: 20070605
  Transmission Date: 20071010
  Serious: Yes (Hospitalization)
  Sender: FDA-Public Use
  Company Number: IT-ROCHE-471915

PATIENT
  Age: 76 Year
  Sex: Female

DRUGS (1)
  1. ROCEPHIN [Suspect]
     Indication: BRONCHOPNEUMOPATHY
     Dosage: FORM REPORTED AS VIAL.
     Route: 030
     Dates: start: 20061117, end: 20061117

REACTIONS (4)
  - DYSPNOEA [None]
  - OEDEMA [None]
  - PRURITUS [None]
  - URTICARIA [None]
